FAERS Safety Report 6315677-3 (Version None)
Quarter: 2009Q3

REPORT INFORMATION
  Report Type: 
  Country: None (occurrence: None)
  Receive Date: 20090818
  Receipt Date: 20090804
  Transmission Date: 20100115
  Serious: Yes (Hospitalization)
  Sender: FDA-Public Use
  Company Number: 8049918

PATIENT
  Age: 19 Year
  Sex: Female

DRUGS (1)
  1. CIMZIA [Suspect]
     Indication: CROHN'S DISEASE
     Dosage: 400 MG/M SC
     Route: 058
     Dates: start: 20081205, end: 20090701

REACTIONS (4)
  - BACK PAIN [None]
  - PAIN IN EXTREMITY [None]
  - PNEUMONIA [None]
  - URINARY TRACT INFECTION [None]
